FAERS Safety Report 4991401-1 (Version None)
Quarter: 2006Q2

REPORT INFORMATION
  Report Type: 
  Country: None (occurrence: None)
  Receive Date: 20060501
  Receipt Date: 20060418
  Transmission Date: 20061013
  Serious: Yes (Other)
  Sender: FDA-Public Use
  Company Number: 200611701GDS

PATIENT
  Age: 29 Year
  Sex: Male

DRUGS (7)
  1. NAPROXEN [Suspect]
  2. LITHIUM CARBONATE [Suspect]
  3. CYCLOBENZAPRINE HCL [Concomitant]
  4. CITALOPRAM HYDROBROMIDE [Concomitant]
  5. ATIVAN [Concomitant]
  6. SEROQUEL [Concomitant]
  7. WELLBUTRIN SR [Concomitant]

REACTIONS (3)
  - COMA [None]
  - MIOSIS [None]
  - OVERDOSE [None]
